FAERS Safety Report 16965433 (Version 2)
Quarter: 2019Q4

REPORT INFORMATION
  Report Type: Spontaneous
  Country: TW (occurrence: TW)
  Receive Date: 20191028
  Receipt Date: 20191104
  Transmission Date: 20200122
  Serious: Yes (Life-Threatening, Other)
  Sender: FDA-Public Use
  Company Number: TW-AMGEN-TWNSP2019177712

PATIENT
  Age: 66 Year
  Sex: Female

DRUGS (2)
  1. DEXAMETHASONE. [Concomitant]
     Active Substance: DEXAMETHASONE
     Indication: PLASMA CELL MYELOMA
     Dosage: UNK
  2. KYPROLIS [Suspect]
     Active Substance: CARFILZOMIB
     Indication: PLASMA CELL MYELOMA
     Dosage: UNK
     Route: 065

REACTIONS (12)
  - Thrombocytopenia [Unknown]
  - Dyspnoea [Unknown]
  - Gingival bleeding [Unknown]
  - Epistaxis [Unknown]
  - Muscle spasms [Unknown]
  - Mucosal inflammation [Unknown]
  - Oropharyngeal pain [Unknown]
  - Vomiting [Unknown]
  - Cough [Unknown]
  - Neutropenia [Unknown]
  - Anaemia [Unknown]
  - Dizziness [Unknown]
